FAERS Safety Report 7002808-5 (Version None)
Quarter: 2010Q3

REPORT INFORMATION
  Report Type: 
  Country: None (occurrence: None)
  Receive Date: 20100920
  Receipt Date: 20100914
  Transmission Date: 20110219
  Serious: Yes (Other)
  Sender: FDA-Public Use
  Company Number: CHPA2010US14685

PATIENT
  Sex: Male
  Weight: 72.562 kg

DRUGS (3)
  1. PRIVATE LABEL (NCH) [Suspect]
     Indication: SMOKING CESSATION THERAPY
     Dosage: 7 MG, QD
     Route: 062
     Dates: start: 20090101, end: 20090101
  2. PRIVATE LABEL (NCH) [Suspect]
     Dosage: 14 MG, QD
     Route: 062
     Dates: start: 20090101, end: 20090101
  3. PRIVATE LABEL (NCH) [Suspect]
     Dosage: 21 MG, QD
     Route: 062
     Dates: start: 20090101, end: 20090101

REACTIONS (3)
  - INAPPROPRIATE SCHEDULE OF DRUG ADMINISTRATION [None]
  - LUNG NEOPLASM MALIGNANT [None]
  - LUNG NEOPLASM SURGERY [None]
